FAERS Safety Report 6140468-6 (Version None)
Quarter: 2009Q1

REPORT INFORMATION
  Report Type: 
  Country: None (occurrence: None)
  Receive Date: 20090331
  Receipt Date: 20090318
  Transmission Date: 20090719
  Serious: Yes (Hospitalization, Other)
  Sender: FDA-Public Use
  Company Number: 2009030040

PATIENT
  Age: 44 Year
  Sex: Female
  Weight: 58.0604 kg

DRUGS (3)
  1. SOMA [Suspect]
     Indication: BACK PAIN
     Dosage: 1000 MG (250 MG, 4 IN 1 D), ORAL
     Route: 048
     Dates: start: 20090201, end: 20090302
  2. SOMA (CARISOPRODOL, USP) (CARISOPRODOL) [Concomitant]
  3. PROZAC [Concomitant]

REACTIONS (3)
  - BLOOD POTASSIUM DECREASED [None]
  - BLOOD SODIUM DECREASED [None]
  - CONVULSION [None]
